FAERS Safety Report 19122723 (Version 1)
Quarter: 2021Q2

REPORT INFORMATION
  Report Type: Report from Study
  Country: GB (occurrence: GB)
  Receive Date: 20210412
  Receipt Date: 20210412
  Transmission Date: 20210717
  Serious: Yes (Hospitalization)
  Sender: FDA-Public Use
  Company Number: GB-MYLANLABS-2021M1021213

PATIENT
  Age: 46 Year
  Sex: Female

DRUGS (37)
  1. TRASTUZUMAB. [Suspect]
     Active Substance: TRASTUZUMAB
     Indication: BREAST CANCER METASTATIC
     Dosage: 600 MILLIGRAM, Q3W
     Route: 042
     Dates: start: 20150420
  2. CODEINE PHOSPHATE [Concomitant]
     Active Substance: CODEINE PHOSPHATE
     Indication: ARTHRALGIA
     Dosage: 30 MILLIGRAM
     Route: 048
     Dates: start: 20160816
  3. PARACETAMOL [Concomitant]
     Active Substance: ACETAMINOPHEN
     Indication: INFLUENZA
     Dosage: 1 GRAM, QID
     Route: 048
     Dates: start: 20180218, end: 20180220
  4. TAZOCIN [Concomitant]
     Active Substance: PIPERACILLIN SODIUM\TAZOBACTAM SODIUM
     Indication: INFLUENZA
     Dosage: 4.5 MILLIGRAM, TID
     Route: 042
     Dates: start: 20150429
  5. E45 [Concomitant]
     Active Substance: LANOLIN\LIGHT MINERAL OIL\PARAFFIN
     Dosage: UNK
  6. PERTUZUMAB. [Suspect]
     Active Substance: PERTUZUMAB
     Indication: BREAST CANCER METASTATIC
     Dosage: 420 MILLIGRAM, Q3W
     Route: 042
     Dates: start: 20150420
  7. IBUPROFEN. [Concomitant]
     Active Substance: IBUPROFEN
     Indication: SPINAL PAIN
     Dosage: 400 MILLIGRAM
     Route: 048
     Dates: start: 20161229
  8. ACICLOVIR [Concomitant]
     Active Substance: ACYCLOVIR
     Indication: GENITAL HERPES
     Dosage: 200 MILLIGRAM, QID
     Route: 048
     Dates: start: 20170211, end: 20170218
  9. CALCEOS [Concomitant]
     Active Substance: CALCIUM CARBONATE\CHOLECALCIFEROL
     Dosage: 1 DOSAGE FORM, QD
     Route: 048
     Dates: start: 20150713, end: 20150824
  10. CO?AMOXICLAV                       /00756801/ [Concomitant]
     Active Substance: AMOXICILLIN\CLAVULANIC ACID
     Indication: INFLUENZA
     Dosage: 625 MILLIGRAM, TID
     Route: 048
     Dates: start: 20180220, end: 20180225
  11. CODEINE [Concomitant]
     Active Substance: CODEINE
     Indication: ARTHRALGIA
     Dosage: 30 MILLIGRAM
     Route: 048
     Dates: start: 20151221, end: 20160425
  12. PARACETAMOL [Concomitant]
     Active Substance: ACETAMINOPHEN
     Indication: ARTHRALGIA
     Dosage: 1 GRAM, QID
     Route: 048
     Dates: start: 20150427, end: 20150505
  13. DOCETAXEL. [Suspect]
     Active Substance: DOCETAXEL
     Indication: BREAST CANCER METASTATIC
     Dosage: 150 MILLIGRAM, Q3W
     Route: 042
     Dates: start: 20150421, end: 20150421
  14. DENOSUMAB [Concomitant]
     Active Substance: DENOSUMAB
     Dosage: 120 MILLIGRAM, MONTHLY
     Route: 058
     Dates: start: 20150623, end: 20170508
  15. OMEPRAZOLE. [Concomitant]
     Active Substance: OMEPRAZOLE
     Indication: GASTRITIS
     Dosage: 20 MILLIGRAM, QD
     Route: 048
     Dates: start: 20150622, end: 20150713
  16. RANITIDINE. [Concomitant]
     Active Substance: RANITIDINE
     Indication: GASTROOESOPHAGEAL REFLUX DISEASE
     Dosage: 150 MILLIGRAM, BID
     Route: 048
     Dates: start: 20150421
  17. SENNA                              /00142201/ [Concomitant]
     Active Substance: SENNA LEAF
     Indication: INFLUENZA
     Dosage: UNK, QD/ 1 OTHER
     Route: 048
     Dates: start: 20180219, end: 20180220
  18. VASELINE                           /00473501/ [Concomitant]
     Active Substance: PARAFFIN
     Indication: EPISTAXIS
     Dosage: 1 TBSP (TABLESPOON)
     Route: 061
     Dates: start: 20160816
  19. ADCAL D3 [Concomitant]
     Active Substance: CALCIUM CARBONATE\CHOLECALCIFEROL
     Dosage: 1 DOSAGE FORM, BID
     Route: 048
     Dates: start: 20150623, end: 20150625
  20. BRUFEN                             /00109201/ [Concomitant]
     Active Substance: IBUPROFEN
     Indication: ARTHRALGIA
     Dosage: 200 MILLIGRAM, BID
     Route: 048
     Dates: start: 20150420, end: 20150426
  21. DENOSUMAB [Concomitant]
     Active Substance: DENOSUMAB
     Dosage: 120 MILLIGRAM, BID
     Route: 048
     Dates: start: 20180115
  22. DOMPERIDONE [Concomitant]
     Active Substance: DOMPERIDONE
     Indication: NAUSEA
     Dosage: 10 MILLIGRAM, TID
     Route: 048
     Dates: start: 20150420, end: 20150427
  23. MEGACE [Concomitant]
     Active Substance: MEGESTROL ACETATE
     Indication: MENOPAUSAL SYMPTOMS
     Dosage: 80 MILLIGRAM, QD
     Route: 048
     Dates: start: 20150601
  24. NAPROXEN. [Concomitant]
     Active Substance: NAPROXEN
     Indication: ARTHRALGIA
     Dosage: 250 MILLIGRAM
     Route: 048
     Dates: start: 2015, end: 20160314
  25. TAZOCIN [Concomitant]
     Active Substance: PIPERACILLIN SODIUM\TAZOBACTAM SODIUM
     Indication: NEUTROPENIC SEPSIS
     Dosage: 4.5 MILLIGRAM, TID
     Route: 042
     Dates: start: 20180218, end: 20180220
  26. ZOPICLONE [Concomitant]
     Active Substance: ZOPICLONE
     Indication: SLEEP DISORDER
     Dosage: 3.75 MILLIGRAM
     Route: 048
     Dates: start: 20151019
  27. AQUEOUS                            /00662801/ [Concomitant]
     Indication: ECZEMA
     Dosage: UNK
     Route: 061
     Dates: start: 20181112
  28. AVEENO [Concomitant]
     Active Substance: DIMETHICONE\HOMOSALATE\OCTINOXATE\OCTISALATE\TITANIUM DIOXIDE
     Indication: ECZEMA
     Dosage: UNK
     Route: 061
     Dates: start: 20190114
  29. LAXIDO [Concomitant]
     Active Substance: POLYETHYLENE GLYCOL 3350\POTASSIUM CHLORIDE\SODIUM BICARBONATE\SODIUM CHLORIDE
     Indication: INFLUENZA
     Dosage: UNK, BID/ 1 OTHER
     Route: 048
     Dates: start: 20180219, end: 20180220
  30. LOPERAMIDE [Concomitant]
     Active Substance: LOPERAMIDE
     Indication: DIARRHOEA
     Dosage: 2 MILLIGRAM, QD/PRN (AS NEEDED)
     Route: 048
     Dates: start: 20150516, end: 20150516
  31. DOCETAXEL. [Suspect]
     Active Substance: DOCETAXEL
     Dosage: 120 MILLIGRAM, Q3W
     Route: 042
     Dates: start: 20150512, end: 20150804
  32. AMOXIL                             /00249601/ [Concomitant]
     Active Substance: AMOXICILLIN
     Indication: LOWER RESPIRATORY TRACT INFECTION
     Dosage: 500 MILLIGRAM, QD
     Route: 048
     Dates: start: 20171227, end: 20180102
  33. TAMIFLU [Concomitant]
     Active Substance: OSELTAMIVIR PHOSPHATE
     Indication: INFLUENZA
     Dosage: 75 MILLIGRAM, BID
     Route: 048
     Dates: start: 20180219, end: 20180226
  34. ENOXAPARIN [Concomitant]
     Active Substance: ENOXAPARIN
     Dosage: 40 MILLIGRAM, QD
     Route: 058
     Dates: start: 20180219, end: 20180220
  35. HYDROCORTISONE. [Concomitant]
     Active Substance: HYDROCORTISONE
     Indication: ECZEMA
     Dosage: 1 GTT DROPS
     Route: 061
  36. NAPROXEN. [Concomitant]
     Active Substance: NAPROXEN
     Indication: INFLUENZA
     Dosage: 500 MILLIGRAM, BID
     Route: 048
     Dates: start: 20180218, end: 20180220
  37. PARACETAMOL [Concomitant]
     Active Substance: ACETAMINOPHEN
     Dosage: 1 GRAM
     Route: 048
     Dates: start: 20150420, end: 20180217

REACTIONS (2)
  - Ovarian cyst [Recovered/Resolved]
  - Abdominal pain [Recovered/Resolved]

NARRATIVE: CASE EVENT DATE: 20160125
